FAERS Safety Report 19290011 (Version 2)
Quarter: 2021Q2

REPORT INFORMATION
  Report Type: Report from Study
  Country: CN (occurrence: CN)
  Receive Date: 20210522
  Receipt Date: 20210608
  Transmission Date: 20210717
  Serious: Yes (Hospitalization)
  Sender: FDA-Public Use
  Company Number: NVSC2021CN109646

PATIENT
  Age: 65 Year
  Sex: Female

DRUGS (8)
  1. DEXAMETHASONE. [Concomitant]
     Active Substance: DEXAMETHASONE
     Indication: PRODUCT USED FOR UNKNOWN INDICATION
     Dosage: UNK (15 BRANCH)
     Route: 065
  2. SODIUM CHLORIDE. [Concomitant]
     Active Substance: SODIUM CHLORIDE
     Dosage: UNK 30 BAG (STRENGTH 0.9%/100 ML)
     Route: 065
  3. GLUCOSE [Concomitant]
     Active Substance: DEXTROSE
     Indication: PRODUCT USED FOR UNKNOWN INDICATION
     Dosage: UNK 15 BAG (STRENGTH 0.9%/250 ML)
     Route: 065
  4. SODIUM CHLORIDE. [Concomitant]
     Active Substance: SODIUM CHLORIDE
     Dosage: UNK 15 BAG (STRENGTH 0.9%/100 ML)
     Route: 065
  5. PIPERACILLIN SODIUM [Concomitant]
     Active Substance: PIPERACILLIN SODIUM
     Indication: PRODUCT USED FOR UNKNOWN INDICATION
     Dosage: UNK (120 BRANCH)
     Route: 065
  6. ZYKADIA [Suspect]
     Active Substance: CERITINIB
     Indication: NON-SMALL CELL LUNG CANCER
     Dosage: 450 MG, QD
     Route: 048
     Dates: start: 20190904
  7. SODIUM CHLORIDE. [Concomitant]
     Active Substance: SODIUM CHLORIDE
     Indication: PRODUCT USED FOR UNKNOWN INDICATION
     Dosage: UNK 13 BAG (STRENGTH 0.9%/250 ML)
     Route: 065
  8. SODIUM CHLORIDE. [Concomitant]
     Active Substance: SODIUM CHLORIDE
     Dosage: UNK 17 BAG (STRENGTH 0.9%/250 ML)
     Route: 065

REACTIONS (33)
  - Platelet count increased [Unknown]
  - White blood cell count increased [Unknown]
  - Blood alkaline phosphatase increased [Unknown]
  - Beta 2 microglobulin increased [Unknown]
  - Blood sodium decreased [Unknown]
  - Carbohydrate antigen 15-3 increased [Unknown]
  - Asthenia [Recovering/Resolving]
  - Prealbumin decreased [Unknown]
  - Blood creatinine decreased [Unknown]
  - C-reactive protein increased [Unknown]
  - Tri-iodothyronine increased [Unknown]
  - Tri-iodothyronine free decreased [Unknown]
  - Albumin globulin ratio decreased [Unknown]
  - Apolipoprotein A-I decreased [Unknown]
  - Nasopharyngitis [Recovering/Resolving]
  - Lymphocyte count decreased [Unknown]
  - Bacterial test positive [Unknown]
  - Neurone-specific enolase [Unknown]
  - Gamma-glutamyltransferase increased [Unknown]
  - Blood albumin decreased [Unknown]
  - Myoglobin blood decreased [Unknown]
  - Urinary sediment present [Unknown]
  - Aspartate aminotransferase increased [Unknown]
  - Globulins increased [Unknown]
  - Blood glucose increased [Unknown]
  - Carbohydrate antigen 19-9 increased [Unknown]
  - Monocyte count increased [Unknown]
  - Blood prolactin increased [Unknown]
  - Blood cholinesterase increased [Unknown]
  - High density lipoprotein decreased [Unknown]
  - Red blood cell count increased [Unknown]
  - Blood chloride decreased [Unknown]
  - Glycosylated haemoglobin increased [Unknown]

NARRATIVE: CASE EVENT DATE: 20210401
